FAERS Safety Report 20585066 (Version 2)
Quarter: 2022Q2

REPORT INFORMATION
  Report Type: Spontaneous
  Country: US (occurrence: None)
  Receive Date: 20220311
  Receipt Date: 20220405
  Transmission Date: 20220720
  Serious: Yes (Other)
  Sender: FDA-Public Use
  Company Number: US-FARMAPROD-202112-2336

PATIENT
  Age: 72 Year
  Sex: Female

DRUGS (32)
  1. OXERVATE [Suspect]
     Active Substance: CENEGERMIN-BKBJ
     Indication: Neurotrophic keratopathy
     Route: 047
     Dates: start: 20210525, end: 20210720
  2. OXERVATE [Suspect]
     Active Substance: CENEGERMIN-BKBJ
     Indication: Hypoaesthesia eye
     Route: 047
     Dates: start: 20210721, end: 20210915
  3. OXERVATE [Suspect]
     Active Substance: CENEGERMIN-BKBJ
     Indication: Ulcerative keratitis
     Route: 047
     Dates: start: 20210927, end: 20211122
  4. OXERVATE [Suspect]
     Active Substance: CENEGERMIN-BKBJ
     Indication: Ulcerative keratitis
     Route: 047
     Dates: start: 20211126, end: 20220121
  5. OXERVATE [Suspect]
     Active Substance: CENEGERMIN-BKBJ
     Route: 047
     Dates: start: 20220122
  6. VITAMIN B12 [Concomitant]
     Active Substance: CYANOCOBALAMIN
  7. POTASSIUM [Concomitant]
     Active Substance: POTASSIUM
     Dosage: 595 (99) MG
  8. VITAMIN D3 [Concomitant]
     Active Substance: CHOLECALCIFEROL
  9. FUROSEMIDE [Concomitant]
     Active Substance: FUROSEMIDE
  10. ZINC-15 [Concomitant]
  11. CHROMIUM PICOLINATE [Concomitant]
     Active Substance: CHROMIUM PICOLINATE
  12. BIOTIN [Concomitant]
     Active Substance: BIOTIN
  13. IRON [Concomitant]
     Active Substance: IRON
     Dosage: 159 (45) MG
  14. THIAMINE HYDROCHLORIDE [Concomitant]
     Active Substance: THIAMINE HYDROCHLORIDE
  15. ZOLPIDEM TARTRATE [Concomitant]
     Active Substance: ZOLPIDEM TARTRATE
  16. WIXELA INHUB [Concomitant]
     Active Substance: FLUTICASONE PROPIONATE\SALMETEROL XINAFOATE
     Dosage: 250-50 MCG BLISTER WITH DEVICE
  17. SPIRIVA [Concomitant]
     Active Substance: TIOTROPIUM BROMIDE MONOHYDRATE
     Dosage: CAPSULE WITH DEVICE
  18. PROAIR HFA [Concomitant]
     Active Substance: ALBUTEROL SULFATE
     Dosage: AEROSOL WITH ADAPTER
  19. HYDROCHLOROTHIAZIDE\LOSARTAN [Concomitant]
     Active Substance: HYDROCHLOROTHIAZIDE\LOSARTAN
  20. ACYCLOVIR [Concomitant]
     Active Substance: ACYCLOVIR
  21. MINOCYCLINE ER [Concomitant]
  22. LEVOTHYROXINE [Concomitant]
     Active Substance: LEVOTHYROXINE
  23. PREMARIN [Concomitant]
     Active Substance: ESTROGENS, CONJUGATED
  24. POTASSIUM ACETATE [Concomitant]
     Active Substance: POTASSIUM ACETATE
  25. JARDIANCE [Concomitant]
     Active Substance: EMPAGLIFLOZIN
  26. RETAINE MGD [Concomitant]
     Active Substance: LIGHT MINERAL OIL\MINERAL OIL
     Dosage: 0.5%-0.5%
  27. PROLENSA [Concomitant]
     Active Substance: BROMFENAC SODIUM
  28. MOXIFLOXACIN [Concomitant]
     Active Substance: MOXIFLOXACIN
  29. DEXAMETHASONE\TOBRAMYCIN [Concomitant]
     Active Substance: DEXAMETHASONE\TOBRAMYCIN
  30. DUREZOL [Concomitant]
     Active Substance: DIFLUPREDNATE
  31. VANCOMYCIN HYDROCHLORIDE [Concomitant]
     Active Substance: VANCOMYCIN HYDROCHLORIDE
  32. PREDNISOLONE [Concomitant]
     Active Substance: PREDNISOLONE

REACTIONS (5)
  - Cryotherapy [Unknown]
  - Blood potassium decreased [Unknown]
  - Migraine [Unknown]
  - Swelling of eyelid [Unknown]
  - Eye swelling [Unknown]

NARRATIVE: CASE EVENT DATE: 20220225
